FAERS Safety Report 16111708 (Version 1)
Quarter: 2019Q1

REPORT INFORMATION
  Report Type: Spontaneous
  Country: IT (occurrence: IT)
  Receive Date: 20190325
  Receipt Date: 20190325
  Transmission Date: 20190418
  Serious: Yes (Other)
  Sender: FDA-Public Use
  Company Number: IT-SA-2019SA072595

PATIENT
  Age: 53 Year
  Sex: Female

DRUGS (6)
  1. FLUOROURACIL. [Suspect]
     Active Substance: FLUOROURACIL
     Indication: COLON CANCER
     Dosage: 4500 MG, QCY
     Route: 040
     Dates: start: 20180116, end: 20180116
  2. OXALIPLATIN. [Suspect]
     Active Substance: OXALIPLATIN
     Indication: COLON CANCER
     Dosage: 120 MG, QCY
     Route: 042
     Dates: start: 20180116, end: 20180116
  3. FLUOROURACIL. [Suspect]
     Active Substance: FLUOROURACIL
     Dosage: 4500 MG, QCY
     Route: 040
     Dates: start: 20180619, end: 20180619
  4. DOXIFLURIDINE [Suspect]
     Active Substance: DOXIFLURIDINE
     Indication: COLON CANCER
     Dosage: 750 MG, QCY
     Route: 042
     Dates: start: 20180116, end: 20180116
  5. DOXIFLURIDINE [Suspect]
     Active Substance: DOXIFLURIDINE
     Dosage: 750 MG, QCY
     Route: 042
     Dates: start: 20180619, end: 20180619
  6. OXALIPLATIN. [Suspect]
     Active Substance: OXALIPLATIN
     Dosage: 120 MG, QCY
     Route: 042
     Dates: start: 20180619, end: 20180619

REACTIONS (1)
  - Neurotoxicity [Recovered/Resolved]

NARRATIVE: CASE EVENT DATE: 20180206
